FAERS Safety Report 25432664 (Version 2)
Quarter: 2025Q2

REPORT INFORMATION
  Report Type: Spontaneous
  Country: US (occurrence: US)
  Receive Date: 20250613
  Receipt Date: 20250619
  Transmission Date: 20250716
  Serious: Yes (Life-Threatening, Hospitalization, Other)
  Sender: RANBAXY
  Company Number: US-SUN PHARMACEUTICAL INDUSTRIES LTD-2025R1-511565

PATIENT
  Age: 13 Year
  Sex: Female

DRUGS (1)
  1. METFORMIN [Suspect]
     Active Substance: METFORMIN HYDROCHLORIDE
     Indication: Intentional product misuse
     Route: 048

REACTIONS (16)
  - Intentional overdose [Unknown]
  - Acute kidney injury [Unknown]
  - Metabolic acidosis [Recovering/Resolving]
  - Hyperlactacidaemia [Unknown]
  - Cardiac dysfunction [Recovering/Resolving]
  - Cardiotoxicity [Recovering/Resolving]
  - Suicide attempt [Unknown]
  - Sinus tachycardia [Unknown]
  - Blood pressure systolic abnormal [Recovering/Resolving]
  - Condition aggravated [Unknown]
  - Tachypnoea [Unknown]
  - Mental status changes [Recovering/Resolving]
  - Hypothermia [Unknown]
  - Hypotension [Recovering/Resolving]
  - Pancreatitis [Recovering/Resolving]
  - Lipase increased [Recovering/Resolving]
